FAERS Safety Report 5754538-5 (Version None)
Quarter: 2008Q2

REPORT INFORMATION
  Report Type: 
  Country: None (occurrence: None)
  Receive Date: 20080530
  Receipt Date: 20080519
  Transmission Date: 20081010
  Serious: No
  Sender: FDA-Public Use
  Company Number: BR-PFIZER INC-2008041622

PATIENT
  Age: 33 Year
  Sex: Female

DRUGS (2)
  1. HIDANTAL [Suspect]
     Indication: EPILEPSY
  2. TEGRETOL [Suspect]
     Indication: EPILEPSY

REACTIONS (1)
  - NO ADVERSE EVENT [None]
